FAERS Safety Report 5191043-1 (Version None)
Quarter: 2006Q4

REPORT INFORMATION
  Report Type: 
  Country: None (occurrence: None)
  Receive Date: 20061226
  Receipt Date: 20061130
  Transmission Date: 20070319
  Serious: Yes (Other)
  Sender: FDA-Public Use
  Company Number: 2006AC02246

PATIENT
  Age: 414 Month
  Sex: Female
  Weight: 60 kg

DRUGS (4)
  1. PULMICORT [Suspect]
     Indication: ASTHMA
     Route: 055
     Dates: start: 20060701
  2. FLUTICASONE PROPIONATE [Suspect]
     Indication: ASTHMA
     Route: 055
     Dates: start: 20060901
  3. MONTELUKAST [Concomitant]
     Indication: ASTHMA
     Route: 048
  4. PREDNISON [Concomitant]
     Indication: ASTHMA
     Dosage: DOSE REPORTED AS 'COURSES 30 MG'
     Dates: start: 20060601

REACTIONS (1)
  - GENERALISED ERYTHEMA [None]
